FAERS Safety Report 8361013-0 (Version None)
Quarter: 2012Q2

REPORT INFORMATION
  Report Type: 
  Country: None (occurrence: None)
  Receive Date: 20120514
  Receipt Date: 20120430
  Transmission Date: 20120825
  Serious: Yes (Death)
  Sender: FDA-Public Use
  Company Number: 2010MA003256

PATIENT
  Age: 63 Year
  Sex: Female

DRUGS (9)
  1. ACETAMINOPHEN [Concomitant]
  2. MILK THISTLE SEED EXTRACT [Concomitant]
  3. FELODIPINE [Concomitant]
  4. CRESTOR [Concomitant]
  5. TRAMADOL HYDROCHLORIDE [Suspect]
     Indication: OSTEOPOROSIS
     Dosage: 100 MG;BID;PO
     Route: 048
     Dates: start: 20050428, end: 20100615
  6. DULCOLAX [Concomitant]
  7. CHONDROITIN SULPHATE [Concomitant]
  8. GLUCOSAMINE [Concomitant]
  9. GARLIC [Concomitant]

REACTIONS (6)
  - SUDDEN CARDIAC DEATH [None]
  - MYOCARDIAL ISCHAEMIA [None]
  - HYPERTENSIVE HEART DISEASE [None]
  - CARDIAC ARREST [None]
  - ARRHYTHMIA [None]
  - NEOPLASM MALIGNANT [None]
